APPROVED DRUG PRODUCT: CEFPROZIL
Active Ingredient: CEFPROZIL
Strength: 250MG
Dosage Form/Route: TABLET;ORAL
Application: A065327 | Product #001
Applicant: APOTEX INC
Approved: Mar 26, 2008 | RLD: No | RS: No | Type: DISCN